FAERS Safety Report 11051046 (Version 2)
Quarter: 2015Q4

REPORT INFORMATION
  Report Type: Spontaneous
  Country: US (occurrence: US)
  Receive Date: 20150421
  Receipt Date: 20151013
  Transmission Date: 20160304
  Serious: Yes (Other)
  Sender: FDA-Public Use
  Company Number: US-ENDO PHARMACEUTICALS INC.-2015-000469

PATIENT
  Age: 35 Year
  Sex: Female

DRUGS (4)
  1. CYCLAFEM 7/7/7 [Suspect]
     Active Substance: ETHINYL ESTRADIOL\NORETHINDRONE
     Route: 048
     Dates: start: 2015
  2. PHENTERMINE. [Concomitant]
     Active Substance: PHENTERMINE
     Indication: WEIGHT DECREASED
     Route: 065
     Dates: start: 20150330, end: 20150730
  3. LEVOTHYROXINE. [Concomitant]
     Active Substance: LEVOTHYROXINE
     Indication: THYROID DISORDER
     Route: 065
     Dates: start: 20120330
  4. CYCLAFEM 7/7/7 [Suspect]
     Active Substance: ETHINYL ESTRADIOL\NORETHINDRONE
     Indication: ORAL CONTRACEPTION
     Route: 048
     Dates: start: 20150408, end: 20150409

REACTIONS (5)
  - Peripheral swelling [Recovered/Resolved]
  - Swelling face [Recovered/Resolved]
  - Local swelling [Recovered/Resolved]
  - Eye swelling [Recovered/Resolved]
  - Rash [Recovered/Resolved]

NARRATIVE: CASE EVENT DATE: 20150408
